FAERS Safety Report 15585271 (Version 1)
Quarter: 2018Q4

REPORT INFORMATION
  Report Type: Spontaneous
  Country: US (occurrence: US)
  Receive Date: 20181105
  Receipt Date: 20181105
  Transmission Date: 20190205
  Serious: No
  Sender: FDA-Public Use
  Company Number: US-ALLERGAN-1805244US

PATIENT
  Sex: Female

DRUGS (1)
  1. LO LOESTRIN FE [Suspect]
     Active Substance: ETHINYL ESTRADIOL\NORETHINDRONE ACETATE
     Indication: PREGNANCY
     Dosage: UNK UNK, UNKNOWN
     Route: 065
     Dates: start: 201710

REACTIONS (3)
  - Menstruation irregular [Unknown]
  - Metrorrhagia [Unknown]
  - Menorrhagia [Unknown]
